FAERS Safety Report 22628631 (Version 1)
Quarter: 2023Q2

REPORT INFORMATION
  Report Type: Report from Study
  Country: CA (occurrence: CA)
  Receive Date: 20230622
  Receipt Date: 20230622
  Transmission Date: 20230721
  Serious: Yes (Death, Hospitalization, Other)
  Sender: FDA-Public Use
  Company Number: CA-MYLANLABS-2023M1031024

PATIENT
  Age: 55 Year
  Sex: Male

DRUGS (6)
  1. CLOZAPINE [Suspect]
     Active Substance: CLOZAPINE
     Indication: Product used for unknown indication
     Dosage: 250 MILLIGRAM
     Route: 065
     Dates: start: 202008
  2. ACETAMINOPHEN [Concomitant]
     Active Substance: ACETAMINOPHEN
     Dosage: 650 MILLIGRAM, Q6H PRN
     Route: 065
  3. ALAM [Concomitant]
     Dosage: UNK
     Route: 065
  4. HYDROMORPHONE [Concomitant]
     Active Substance: HYDROMORPHONE
     Dosage: 0.5 MILLIGRAM, Q4H
     Route: 065
  5. ALBUTEROL [Concomitant]
     Active Substance: ALBUTEROL
     Dosage: 100 MILLIGRAM, Q4H
     Route: 065
  6. NICOTINE [Concomitant]
     Active Substance: NICOTINE
     Dosage: 14 MILLIGRAM
     Route: 065

REACTIONS (4)
  - Death [Fatal]
  - Lung cancer metastatic [Unknown]
  - Hepatic cancer [Unknown]
  - Hospice care [Unknown]

NARRATIVE: CASE EVENT DATE: 20230209
